FAERS Safety Report 9686586 (Version 1)
Quarter: 2013Q4

REPORT INFORMATION
  Report Type: Spontaneous
  Country: US (occurrence: US)
  Receive Date: 20131113
  Receipt Date: 20131113
  Transmission Date: 20140711
  Serious: Yes (Other)
  Sender: FDA-Public Use
  Company Number: US-GLAXOSMITHKLINE-A1049071A

PATIENT
  Sex: Male

DRUGS (2)
  1. VOTRIENT [Suspect]
     Indication: RENAL CELL CARCINOMA
     Route: 065
  2. UNKNOWN [Concomitant]

REACTIONS (3)
  - Pericardial effusion [Not Recovered/Not Resolved]
  - Cough [Recovering/Resolving]
  - Dyspnoea [Recovering/Resolving]
